FAERS Safety Report 6975212-3 (Version None)
Quarter: 2010Q3

REPORT INFORMATION
  Report Type: 
  Country: None (occurrence: None)
  Receive Date: 20100910
  Receipt Date: 20090224
  Transmission Date: 20110219
  Serious: Yes (Other)
  Sender: FDA-Public Use
  Company Number: US-WYE-H08337109

PATIENT
  Sex: Male
  Weight: 83.99 kg

DRUGS (10)
  1. PRISTIQ [Suspect]
     Indication: DEPRESSION
     Route: 048
     Dates: start: 20090201, end: 20090221
  2. PRISTIQ [Suspect]
     Dosage: ^CUTTING TABLET IN HALF^
     Route: 048
     Dates: start: 20090222
  3. TOPAMAX [Concomitant]
     Dosage: UNKNOWN
  4. VALIUM [Concomitant]
     Dosage: UNKNOWN
  5. ACETYLSALICYLIC ACID [Concomitant]
     Dosage: ^BABY^
  6. OMEPRAZOLE [Concomitant]
     Dosage: UNKNOWN
  7. OXYCODONE HCL [Concomitant]
     Indication: BREAKTHROUGH PAIN
     Dosage: UNKNOWN
  8. MORPHINE SULFATE [Concomitant]
  9. DILANTIN [Concomitant]
  10. CALCITONIN-SALMON [Concomitant]
     Dosage: UNKNOWN

REACTIONS (6)
  - ASTHENIA [None]
  - CONDITION AGGRAVATED [None]
  - CONVULSION [None]
  - DEPRESSED LEVEL OF CONSCIOUSNESS [None]
  - HYPERSOMNIA [None]
  - INSOMNIA [None]
